FAERS Safety Report 7756960-4 (Version None)
Quarter: 2011Q3

REPORT INFORMATION
  Report Type: 
  Country: None (occurrence: None)
  Receive Date: 20110916
  Receipt Date: 20110916
  Transmission Date: 20111222
  Serious: Yes (Hospitalization)
  Sender: FDA-Public Use
  Company Number: None

PATIENT
  Sex: Female
  Weight: 53.8 kg

DRUGS (1)
  1. FLUCYTOSINE [Suspect]
     Indication: GLIOBLASTOMA
     Dosage: 3500 MG
     Route: 048
     Dates: start: 20110820, end: 20110826

REACTIONS (4)
  - DYSPHAGIA [None]
  - COGNITIVE DISORDER [None]
  - DISEASE PROGRESSION [None]
  - NERVOUS SYSTEM DISORDER [None]
